FAERS Safety Report 19744575 (Version 1)
Quarter: 2021Q3

REPORT INFORMATION
  Report Type: Spontaneous
  Country: US (occurrence: US)
  Receive Date: 20210821
  Receipt Date: 20210821
  Transmission Date: 20211014
  Serious: Yes (Death, Hospitalization)
  Sender: FDA-Public Use
  Company Number: None

PATIENT
  Age: 34 Month
  Sex: Female
  Weight: 14.1 kg

DRUGS (4)
  1. ONCASPAR [Suspect]
     Active Substance: PEGASPARGASE
     Dates: end: 20210715
  2. VINCRISTINE SULFATE. [Suspect]
     Active Substance: VINCRISTINE SULFATE
     Dates: end: 20210803
  3. CYTARABINE. [Suspect]
     Active Substance: CYTARABINE
     Dates: end: 20210722
  4. DEXAMETHASONE. [Suspect]
     Active Substance: DEXAMETHASONE
     Dates: end: 20210722

REACTIONS (16)
  - Abdominal distension [None]
  - Vomiting [None]
  - Malaise [None]
  - Pallor [None]
  - Peritonitis [None]
  - Tachycardia [None]
  - Atelectasis [None]
  - Hypotension [None]
  - Fatigue [None]
  - Flatulence [None]
  - Pneumatosis [None]
  - Ascites [None]
  - Pleural effusion [None]
  - Dyspnoea [None]
  - Bradycardia [None]
  - Urine output decreased [None]

NARRATIVE: CASE EVENT DATE: 20210805
